FAERS Safety Report 14482172 (Version 2)
Quarter: 2018Q3

REPORT INFORMATION
  Report Type: Report from Study
  Country: US (occurrence: US)
  Receive Date: 20180202
  Receipt Date: 20180817
  Transmission Date: 20181010
  Serious: Yes (Hospitalization)
  Sender: FDA-Public Use
  Company Number: US-ACTELION-A-NJ2018-166893

PATIENT
  Age: 63 Year
  Sex: Female

DRUGS (35)
  1. LORAZEPAM. [Concomitant]
     Active Substance: LORAZEPAM
  2. TRAMADOL. [Concomitant]
     Active Substance: TRAMADOL
  3. LAMOTRIGINE. [Concomitant]
     Active Substance: LAMOTRIGINE
  4. INCRUSE ELLIPTA [Concomitant]
     Active Substance: UMECLIDINIUM BROMIDE
  5. ESZOPICLONE. [Concomitant]
     Active Substance: ESZOPICLONE
  6. WARFARIN [Concomitant]
     Active Substance: WARFARIN
  7. METRONIDAZOLE. [Concomitant]
     Active Substance: METRONIDAZOLE
  8. NYSTATIN. [Concomitant]
     Active Substance: NYSTATIN
  9. PROVENTIL [Concomitant]
     Active Substance: ALBUTEROL
  10. GABAPENTIN. [Concomitant]
     Active Substance: GABAPENTIN
  11. MAGNESIUM OXIDE. [Concomitant]
     Active Substance: MAGNESIUM OXIDE
  12. ESTRADIOL. [Concomitant]
     Active Substance: ESTRADIOL
  13. METHOCARBAMOL. [Concomitant]
     Active Substance: METHOCARBAMOL
  14. HYDROCHLOROTHIAZIDE. [Concomitant]
     Active Substance: HYDROCHLOROTHIAZIDE
  15. QUETIAPINE. [Concomitant]
     Active Substance: QUETIAPINE
  16. PAROXETINE. [Concomitant]
     Active Substance: PAROXETINE
  17. LORATADINE. [Concomitant]
     Active Substance: LORATADINE
  18. FLUOXETINE [Concomitant]
     Active Substance: FLUOXETINE HYDROCHLORIDE
  19. BREO ELLIPTA [Concomitant]
     Active Substance: FLUTICASONE FUROATE\VILANTEROL TRIFENATATE
  20. FERROUS SULFATE. [Concomitant]
     Active Substance: FERROUS SULFATE
  21. BUPROPION. [Concomitant]
     Active Substance: BUPROPION
  22. VITAMIN D [Concomitant]
     Active Substance: CHOLECALCIFEROL
  23. TRIAMCINOLONE [Concomitant]
     Active Substance: TRIAMCINOLONE
  24. ENOXAPARIN [Concomitant]
     Active Substance: ENOXAPARIN
  25. OPSUMIT [Suspect]
     Active Substance: MACITENTAN
     Indication: PULMONARY ARTERIAL HYPERTENSION
     Dosage: 10 MG, QD
     Route: 048
     Dates: start: 20171219
  26. NITROFURANTOIN. [Concomitant]
     Active Substance: NITROFURANTOIN
  27. POTASSIUM CHLORIDE. [Concomitant]
     Active Substance: POTASSIUM CHLORIDE
  28. TORSEMIDE. [Concomitant]
     Active Substance: TORSEMIDE
  29. ZOLPIDEM [Concomitant]
     Active Substance: ZOLPIDEM\ZOLPIDEM TARTRATE
  30. SILDENAFIL. [Concomitant]
     Active Substance: SILDENAFIL
  31. SPIRONOLACTONE. [Concomitant]
     Active Substance: SPIRONOLACTONE
  32. OMEPRAZOLE. [Concomitant]
     Active Substance: OMEPRAZOLE
  33. OSELTAMIVIR [Concomitant]
     Active Substance: OSELTAMIVIR
  34. FLUCONAZOLE. [Concomitant]
     Active Substance: FLUCONAZOLE
  35. OXYCODONE [Concomitant]
     Active Substance: OXYCODONE

REACTIONS (3)
  - Neoplasm [Not Recovered/Not Resolved]
  - Catheter placement [Unknown]
  - Gallbladder disorder [Not Recovered/Not Resolved]

NARRATIVE: CASE EVENT DATE: 20180114
